FAERS Safety Report 5640844-1 (Version None)
Quarter: 2008Q1

REPORT INFORMATION
  Report Type: 
  Country: None (occurrence: None)
  Receive Date: 20080227
  Receipt Date: 20080218
  Transmission Date: 20080703
  Serious: No
  Sender: FDA-Public Use
  Company Number: MX-ELI_LILLY_AND_COMPANY-MX200801005014

PATIENT
  Age: 73 Year
  Sex: Male
  Weight: 80 kg

DRUGS (4)
  1. FORTEO [Suspect]
     Indication: OSTEOPOROSIS
     Dosage: 20 UG, DAILY (1/D)
     Route: 058
     Dates: start: 20071224, end: 20080101
  2. NORVASC [Concomitant]
     Indication: BLOOD PRESSURE ABNORMAL
     Dosage: 5 MG, EACH EVENING
     Route: 048
  3. DICLOFENAC POTASSIUM [Concomitant]
     Indication: ARTHRALGIA
     Dosage: 75 MG, UNKNOWN
     Route: 048
  4. LANOXIN [Concomitant]
     Indication: CARDIAC DISORDER
     Dosage: UNK, UNKNOWN
     Route: 065
     Dates: start: 20071101

REACTIONS (4)
  - POOR PERIPHERAL CIRCULATION [None]
  - PRURITUS [None]
  - PRURITUS GENITAL [None]
  - SCRATCH [None]
